FAERS Safety Report 10023713 (Version 1)
Quarter: 2014Q1

REPORT INFORMATION
  Report Type: Report from Study
  Country: US (occurrence: US)
  Receive Date: 20140320
  Receipt Date: 20140320
  Transmission Date: 20141002
  Serious: Yes (Hospitalization, Other)
  Sender: FDA-Public Use
  Company Number: GXBR2014US000888

PATIENT
  Age: 61 Year
  Sex: Male
  Weight: 106.58 kg

DRUGS (3)
  1. ENOXAPARIN SODIUM [Suspect]
     Indication: ANTICOAGULANT THERAPY
     Dosage: 117 MG, Q12H
     Route: 058
     Dates: start: 20140211, end: 20140221
  2. WARFARIN [Suspect]
     Indication: ATRIAL FIBRILLATION
     Dosage: UNK MG, UNK
     Dates: start: 20140221
  3. WARFARIN [Suspect]
     Dosage: UNK MG, UNK
     Dates: end: 20140210

REACTIONS (5)
  - Haematoma [Recovered/Resolved]
  - Local swelling [Recovered/Resolved]
  - Wound dehiscence [Recovered/Resolved]
  - Medical device complication [Recovered/Resolved]
  - Pyrexia [Recovered/Resolved]
